FAERS Safety Report 6929074-0 (Version None)
Quarter: 2010Q3

REPORT INFORMATION
  Report Type: 
  Country: None (occurrence: None)
  Receive Date: 20100811
  Receipt Date: 20100803
  Transmission Date: 20110219
  Serious: Yes (Other)
  Sender: FDA-Public Use
  Company Number: FR-1182467

PATIENT
  Age: 66 Year
  Sex: Male

DRUGS (2)
  1. FLUOROMETHOLONE [Suspect]
     Indication: CORNEAL TRANSPLANT
     Dosage: 1 OR 4 GTTS DAILY OPHTHALMIC
     Route: 047
     Dates: start: 20070101, end: 20100601
  2. TIMOPTOL LP (TIMOLOL MALEATE) [Concomitant]

REACTIONS (5)
  - EYE PAIN [None]
  - INTRAOCULAR PRESSURE INCREASED [None]
  - MACULAR OEDEMA [None]
  - OCULAR HYPERAEMIA [None]
  - VISION BLURRED [None]
